FAERS Safety Report 9342841 (Version 1)
Quarter: 2013Q2

REPORT INFORMATION
  Report Type: Spontaneous
  Country: US (occurrence: US)
  Receive Date: 20130611
  Receipt Date: 20130611
  Transmission Date: 20140414
  Serious: Yes (Disabling)
  Sender: FDA-Public Use
  Company Number: US-GLAXOSMITHKLINE-A1025844A

PATIENT
  Age: 80 Year
  Sex: Female

DRUGS (5)
  1. VOTRIENT [Suspect]
     Indication: PRODUCT USED FOR UNKNOWN INDICATION
     Dosage: 800MG PER DAY
     Route: 048
     Dates: start: 20130401
  2. MULTI VITAMIN [Concomitant]
  3. CO Q10 [Concomitant]
  4. GABAPENTIN [Concomitant]
  5. LEVOTHYROXINE [Concomitant]

REACTIONS (1)
  - Oral pain [Unknown]
